FAERS Safety Report 14716762 (Version 1)
Quarter: 2018Q2

REPORT INFORMATION
  Report Type: Spontaneous
  Country: JP (occurrence: JP)
  Receive Date: 20180404
  Receipt Date: 20180404
  Transmission Date: 20180711
  Serious: Yes (Other)
  Sender: FDA-Public Use
  Company Number: JP-PFIZER INC-2017272142

PATIENT
  Age: 68 Year
  Sex: Male

DRUGS (2)
  1. VFEND [Suspect]
     Active Substance: VORICONAZOLE
     Indication: BRONCHOPULMONARY ASPERGILLOSIS
     Dosage: 200 MG, 2X/DAY
     Route: 048
     Dates: start: 20160819, end: 20170519
  2. DAIKENCHUTO [Concomitant]
     Active Substance: HERBALS

REACTIONS (2)
  - Bowen^s disease [Recovering/Resolving]
  - Photosensitivity reaction [Recovering/Resolving]
